FAERS Safety Report 4865975-5 (Version None)
Quarter: 2005Q4

REPORT INFORMATION
  Report Type: 
  Country: None (occurrence: None)
  Receive Date: 20051226
  Receipt Date: 20051107
  Transmission Date: 20060501
  Serious: Yes (Hospitalization, Other)
  Sender: FDA-Public Use
  Company Number: PHNU2005DE03660

PATIENT
  Age: 89 Year
  Sex: Female

DRUGS (6)
  1. TRILEPTAL [Suspect]
     Indication: EPILEPSY
     Dosage: 600 MG/D
     Route: 048
     Dates: start: 20050301, end: 20051115
  2. ASPIRIN [Concomitant]
  3. EUGLUCON [Concomitant]
  4. APROVEL [Concomitant]
  5. MELPERON [Concomitant]
     Dosage: 20 ML/D
  6. LORAZEPAM [Concomitant]
     Dosage: 1 MG/D

REACTIONS (8)
  - APATHY [None]
  - DEHYDRATION [None]
  - EYELID OEDEMA [None]
  - HYPOGLYCAEMIA [None]
  - HYPONATRAEMIA [None]
  - MENTAL DISORDER [None]
  - SOMNOLENCE [None]
  - URINARY TRACT INFECTION [None]
